FAERS Safety Report 10066512 (Version 2)
Quarter: 2014Q2

REPORT INFORMATION
  Report Type: Report from Study
  Country: AU (occurrence: AU)
  Receive Date: 20140408
  Receipt Date: 20140422
  Transmission Date: 20141212
  Serious: Yes (Other)
  Sender: FDA-Public Use
  Company Number: PHHY2014AU042082

PATIENT
  Sex: Female

DRUGS (8)
  1. ACLASTA [Suspect]
     Dosage: 5 MG, UNK
     Route: 042
     Dates: start: 20100913
  2. ACLASTA [Suspect]
     Dosage: 5 MG, UNK
     Route: 042
     Dates: start: 20111021
  3. ACLASTA [Suspect]
     Dosage: 5 MG, UNK
     Route: 042
     Dates: start: 20121126
  4. COVERAM [Concomitant]
     Dosage: UNK UKN, UNK
     Route: 048
  5. CREON [Concomitant]
     Dosage: UNK UKN, UNK
     Route: 048
  6. PHYSIOTENS [Concomitant]
     Dosage: UNK UKN, UNK
     Route: 048
  7. EFEXOR [Concomitant]
     Dosage: UNK UKN, UNK
     Route: 048
  8. VASOCARDOL [Concomitant]
     Dosage: UNK UKN, UNK
     Route: 048

REACTIONS (2)
  - Skin cancer [Recovering/Resolving]
  - Impaired healing [Recovering/Resolving]
